FAERS Safety Report 9907319 (Version 2)
Quarter: 2014Q1

REPORT INFORMATION
  Report Type: Report from Study
  Country: JP (occurrence: JP)
  Receive Date: 20140218
  Receipt Date: 20140218
  Transmission Date: 20141002
  Serious: Yes (Other)
  Sender: FDA-Public Use
  Company Number: JP-B.I. PHARMACEUTICALS,INC./RIDGEFIELD-2013-BI-09255NB

PATIENT
  Age: 67 Year
  Sex: Male
  Weight: 65 kg

DRUGS (3)
  1. PRAZAXA [Suspect]
     Indication: CEREBROVASCULAR ACCIDENT PROPHYLAXIS
     Dosage: 300 MG
     Route: 048
     Dates: start: 20121208
  2. MAINTATE / BISOPROLOL FUMARATE [Concomitant]
     Indication: ATRIAL FIBRILLATION
     Dosage: 2.5 MG
     Route: 048
     Dates: start: 20121208
  3. TAMBOCOR / FLECAINIDE ACETATE [Concomitant]
     Indication: CARDIOVERSION
     Dosage: 200 MG
     Route: 048
     Dates: start: 20130112, end: 20130126

REACTIONS (2)
  - Cardiac failure [Recovered/Resolved]
  - Activated partial thromboplastin time prolonged [Recovered/Resolved]
